FAERS Safety Report 9764289 (Version 3)
Quarter: 2014Q1

REPORT INFORMATION
  Report Type: Spontaneous
  Country: ES (occurrence: ES)
  Receive Date: 20131217
  Receipt Date: 20140207
  Transmission Date: 20141002
  Serious: Yes (Other)
  Sender: FDA-Public Use
  Company Number: ES-AMGEN-ESPSP2013087094

PATIENT
  Age: 72 Year
  Sex: Female

DRUGS (1)
  1. PROLIA [Suspect]
     Indication: OSTEOPOROSIS POSTMENOPAUSAL
     Dosage: UNK
     Route: 065
     Dates: start: 201211

REACTIONS (5)
  - Blindness [Unknown]
  - Eye disorder [Unknown]
  - Lacrimation increased [Unknown]
  - Ocular discomfort [Unknown]
  - Abnormal sensation in eye [Unknown]
